FAERS Safety Report 19169532 (Version 4)
Quarter: 2021Q3

REPORT INFORMATION
  Report Type: Spontaneous
  Country: ES (occurrence: ES)
  Receive Date: 20210422
  Receipt Date: 20210701
  Transmission Date: 20211014
  Serious: Yes (Other)
  Sender: FDA-Public Use
  Company Number: ES-BRISTOL-MYERS SQUIBB COMPANY-BMS-2021-036000

PATIENT
  Age: 56 Year
  Sex: Female

DRUGS (6)
  1. OPDIVO [Suspect]
     Active Substance: NIVOLUMAB
     Dosage: 100 MG VIAL 10 ML
     Route: 065
     Dates: start: 20210302
  2. OPDIVO [Suspect]
     Active Substance: NIVOLUMAB
     Indication: RENAL CELL CARCINOMA
     Dosage: UNK
     Route: 065
     Dates: start: 20201224
  3. OPDIVO [Suspect]
     Active Substance: NIVOLUMAB
     Dosage: 40 MG VIAL 4 ML
     Route: 065
     Dates: start: 20210302
  4. YERVOY [Suspect]
     Active Substance: IPILIMUMAB
     Indication: RENAL CELL CARCINOMA
     Dosage: UNK
     Route: 065
     Dates: start: 20201224, end: 20210302
  5. OPDIVO [Suspect]
     Active Substance: NIVOLUMAB
     Dosage: UNK
     Route: 065
     Dates: start: 20210407
  6. YERVOY [Suspect]
     Active Substance: IPILIMUMAB
     Dosage: 50 MG VIAL 10 ML
     Route: 065
     Dates: start: 20210302

REACTIONS (1)
  - Hepatitis C [Recovering/Resolving]

NARRATIVE: CASE EVENT DATE: 20210312
